FAERS Safety Report 4970842-2 (Version None)
Quarter: 2006Q2

REPORT INFORMATION
  Report Type: 
  Country: None (occurrence: None)
  Receive Date: 20060406
  Receipt Date: 20060321
  Transmission Date: 20061013
  Serious: Yes (Hospitalization)
  Sender: FDA-Public Use
  Company Number: US200603005528

PATIENT
  Age: 72 Year
  Sex: Female

DRUGS (1)
  1. GEMZAR [Suspect]
     Indication: PANCREATIC CARCINOMA
     Dosage: INTRAVENOUS
     Route: 042

REACTIONS (5)
  - FASCIITIS [None]
  - OEDEMA PERIPHERAL [None]
  - PYREXIA [None]
  - SKIN EXFOLIATION [None]
  - UNEVALUABLE EVENT [None]
